FAERS Safety Report 9723185 (Version 3)
Quarter: 2013Q4

REPORT INFORMATION
  Report Type: Spontaneous
  Country: US (occurrence: US)
  Receive Date: 20131202
  Receipt Date: 20131213
  Transmission Date: 20140711
  Serious: Yes (Death, Life-Threatening, Hospitalization)
  Sender: FDA-Public Use
  Company Number: US-LUNDBECK-DKLU1095626

PATIENT
  Age: 50 Year
  Sex: Female

DRUGS (2)
  1. SABRIL (FOR ORAL SOLUTION) [Suspect]
     Indication: COMPLEX PARTIAL SEIZURES
     Route: 048
     Dates: start: 20121011
  2. SABRIL (FOR ORAL SOLUTION) [Suspect]
     Dates: start: 20121011

REACTIONS (4)
  - Death [Fatal]
  - Septic shock [Unknown]
  - Pneumonia [Unknown]
  - Convulsion [Unknown]
